FAERS Safety Report 10625071 (Version 1)
Quarter: 2014Q4

REPORT INFORMATION
  Report Type: Spontaneous
  Country: FR (occurrence: None)
  Receive Date: 20141202
  Receipt Date: 20141202
  Transmission Date: 20150529
  Serious: Yes (Disabling, Other)
  Sender: FDA-Public Use
  Company Number: INT_00530_2014

PATIENT
  Age: 46 Year
  Sex: Female

DRUGS (4)
  1. PACLITAXEL (PACLITAXEL) (HQ SPECIALTY) [Suspect]
     Active Substance: PACLITAXEL
     Indication: METASTASES TO LUNG
  2. BEVACIZUMAB (BEVACIZUMAB) [Suspect]
     Active Substance: BEVACIZUMAB
     Indication: METASTASES TO CENTRAL NERVOUS SYSTEM
  3. BEVACIZUMAB (BEVACIZUMAB) [Suspect]
     Active Substance: BEVACIZUMAB
     Indication: METASTASES TO LUNG
  4. PACLITAXEL (PACLITAXEL) (HQ SPECIALTY) [Suspect]
     Active Substance: PACLITAXEL
     Indication: METASTASES TO CENTRAL NERVOUS SYSTEM

REACTIONS (5)
  - Scar [None]
  - Malignant neoplasm progression [None]
  - Vocal cord disorder [None]
  - Dysphonia [None]
  - Metastases to lung [None]
